FAERS Safety Report 14665511 (Version 4)
Quarter: 2020Q1

REPORT INFORMATION
  Report Type: Report from Study
  Country: JP (occurrence: JP)
  Receive Date: 20180321
  Receipt Date: 20200211
  Transmission Date: 20200409
  Serious: Yes (Hospitalization, Other)
  Sender: FDA-Public Use
  Company Number: JP-SA-2018SA079678

PATIENT
  Age: 44 Year
  Sex: Female

DRUGS (9)
  1. PARIET [Concomitant]
     Active Substance: RABEPRAZOLE SODIUM
     Indication: ACUTE MYELOID LEUKAEMIA
     Dosage: 10 MG, QD
     Route: 048
  2. NOVAMIN [PROCHLORPERAZINE MALEATE] [Concomitant]
     Indication: ACUTE MYELOID LEUKAEMIA
     Dosage: 15 MG, QD
     Route: 048
  3. CLOFARABINE. [Suspect]
     Active Substance: CLOFARABINE
     Indication: ACUTE MYELOID LEUKAEMIA
     Dosage: 42 MG, QD
     Route: 041
     Dates: start: 20140530, end: 20140603
  4. DEPAS [ETIZOLAM] [Concomitant]
     Active Substance: ETIZOLAM
     Indication: ACUTE MYELOID LEUKAEMIA
     Dosage: 0.5 MG, QD
     Route: 048
  5. PRIMPERAN [Concomitant]
     Active Substance: METOCLOPRAMIDE HYDROCHLORIDE
     Indication: ACUTE MYELOID LEUKAEMIA
     Dosage: 15 MG, QD
     Route: 048
  6. CRAVIT [Concomitant]
     Active Substance: LEVOFLOXACIN
     Indication: ACUTE MYELOID LEUKAEMIA
     Dosage: 500 MG, QD
     Route: 048
  7. URSODEOXYCHOLIC ACID [Concomitant]
     Active Substance: URSODIOL
     Indication: ACUTE MYELOID LEUKAEMIA
     Dosage: 300 MG, QD
     Route: 048
  8. ITRIZOLE [Concomitant]
     Active Substance: ITRACONAZOLE
     Indication: ACUTE MYELOID LEUKAEMIA
     Dosage: 20 ML, QD
     Route: 048
  9. WYPAX [Concomitant]
     Active Substance: LORAZEPAM
     Indication: ACUTE MYELOID LEUKAEMIA
     Dosage: 1.5 MG, QD
     Route: 048

REACTIONS (2)
  - Cytopenia [Not Recovered/Not Resolved]
  - Hepatic function abnormal [Recovered/Resolved]

NARRATIVE: CASE EVENT DATE: 20140602
